FAERS Safety Report 6907833-8 (Version None)
Quarter: 2010Q3

REPORT INFORMATION
  Report Type: 
  Country: None (occurrence: None)
  Receive Date: 20100805
  Receipt Date: 20100731
  Transmission Date: 20110219
  Serious: Yes (Life-Threatening, Other)
  Sender: FDA-Public Use
  Company Number: MX-TEVA-243343ISR

PATIENT
  Age: 82 Year
  Sex: Female

DRUGS (1)
  1. AZILECT [Suspect]
     Indication: PARKINSON'S DISEASE
     Dosage: HALF OF AN AZILECT TABLET PER DAY
     Route: 048

REACTIONS (1)
  - CEREBRAL ARTERY EMBOLISM [None]
